FAERS Safety Report 8539013-7 (Version None)
Quarter: 2012Q3

REPORT INFORMATION
  Report Type: 
  Country: None (occurrence: None)
  Receive Date: 20120716
  Receipt Date: 20120629
  Transmission Date: 20120928
  Serious: Yes (Other)
  Sender: FDA-Public Use
  Company Number: FR-1191904

PATIENT
  Age: 82 Year
  Sex: Male

DRUGS (7)
  1. IOPIDINE [Suspect]
     Dosage: BID OPHTHALMIC
     Route: 047
     Dates: start: 20110202, end: 20110220
  2. LUCENTIS [Suspect]
     Indication: AGE-RELATED MACULAR DEGENERATION
     Dosage: (10 MG/ML 1 ADMINISTRATION PER MONTH)
     Dates: start: 20110202, end: 20110609
  3. PERMIXON [Concomitant]
  4. OFLOXACIN [Suspect]
     Dosage: BID
     Dates: start: 20110201, end: 20110206
  5. LACRIGEL (LACRIGEL) (FARMIGEA S.P.A.) [Suspect]
     Dosage: TID
     Dates: start: 20110202, end: 20110206
  6. ALFUZOSIN HYDROCHLORIDE [Concomitant]
  7. PREVISCAN [Concomitant]

REACTIONS (1)
  - RETINAL PIGMENT EPITHELIAL TEAR [None]
